FAERS Safety Report 4380699-9 (Version None)
Quarter: 2004Q2

REPORT INFORMATION
  Report Type: 
  Country: None (occurrence: None)
  Receive Date: 20040616
  Receipt Date: 20040601
  Transmission Date: 20050107
  Serious: Yes (Other)
  Sender: FDA-Public Use
  Company Number: 2004IM000267

PATIENT
  Age: 60 Year
  Sex: Female

DRUGS (4)
  1. ADVAFERON (A643_INTERFERON ALFACON-1) [Suspect]
     Indication: HEPATITIS C
     Dosage: 18 MIU; QD; SUBCUTANEOUS
     Route: 058
     Dates: start: 20020410, end: 20020529
  2. LOXOPROFEN SODIUM [Concomitant]
  3. LANSOPRAZOLE [Concomitant]
  4. GASMOTIN [Concomitant]

REACTIONS (4)
  - ALANINE AMINOTRANSFERASE INCREASED [None]
  - ASPARTATE AMINOTRANSFERASE INCREASED [None]
  - HEPATIC FUNCTION ABNORMAL [None]
  - MALAISE [None]
